FAERS Safety Report 9701676 (Version 2)
Quarter: 2013Q4

REPORT INFORMATION
  Report Type: Spontaneous
  Country: US (occurrence: US)
  Receive Date: 20131119
  Receipt Date: 20131119
  Transmission Date: 20140711
  Serious: Yes (Other)
  Sender: FDA-Public Use
  Company Number: US-SAVIENT-2013S1000009

PATIENT
  Age: 54 Year
  Sex: Male

DRUGS (5)
  1. KRYSTEXXA [Suspect]
     Indication: GOUTY TOPHUS
     Route: 042
     Dates: start: 20121127, end: 20121127
  2. KRYSTEXXA [Suspect]
     Indication: GOUTY TOPHUS
     Route: 042
     Dates: start: 20121227, end: 20121227
  3. SOLU-MEDROL [Concomitant]
     Indication: ALLERGY PROPHYLAXIS
     Route: 042
     Dates: start: 20121227, end: 20121227
  4. TYLENOL /00020001/ [Concomitant]
     Indication: ALLERGY PROPHYLAXIS
     Dates: start: 20121227, end: 20121227
  5. ZYRTEC [Concomitant]
     Indication: ALLERGY PROPHYLAXIS
     Dates: start: 20121227, end: 20121227

REACTIONS (2)
  - Infusion related reaction [Recovered/Resolved]
  - Therapeutic response decreased [Recovered/Resolved]
